APPROVED DRUG PRODUCT: THIORIDAZINE HYDROCHLORIDE
Active Ingredient: THIORIDAZINE HYDROCHLORIDE
Strength: 30MG/ML
Dosage Form/Route: CONCENTRATE;ORAL
Application: A040187 | Product #001
Applicant: PHARMACEUTICAL ASSOCIATES INC
Approved: Aug 28, 1997 | RLD: No | RS: No | Type: DISCN